FAERS Safety Report 19681476 (Version 1)
Quarter: 2021Q3

REPORT INFORMATION
  Report Type: Spontaneous
  Country: IL (occurrence: IL)
  Receive Date: 20210810
  Receipt Date: 20210810
  Transmission Date: 20211014
  Serious: Yes (Other)
  Sender: FDA-Public Use
  Company Number: IL-FRESENIUS KABI-FK202108325

PATIENT
  Age: 82 Year
  Sex: Female

DRUGS (1)
  1. PROTAMINE SULFATE (MANUFACTURER UNKNOWN) [Suspect]
     Active Substance: PROTAMINE SULFATE
     Indication: HAEMORRHAGE
     Route: 065

REACTIONS (2)
  - Thrombosis [Recovered/Resolved]
  - Acute myocardial infarction [Recovered/Resolved]
